FAERS Safety Report 12647246 (Version 1)
Quarter: 2016Q3

REPORT INFORMATION
  Report Type: Spontaneous
  Country: US (occurrence: US)
  Receive Date: 20160812
  Receipt Date: 20160812
  Transmission Date: 20161109
  Serious: Yes (Death)
  Sender: FDA-Public Use
  Company Number: US-SUN PHARMACEUTICAL INDUSTRIES LTD-2016US-121367

PATIENT
  Age: 6 Year
  Sex: Female
  Weight: 44.9 kg

DRUGS (6)
  1. GUAIFENESIN/CODEINE [Suspect]
     Active Substance: CODEINE PHOSPHATE\GUAIFENESIN
     Indication: COUGH
     Dosage: UNK
     Route: 065
  2. AZITHROMYCIN ANHYDROUS. [Suspect]
     Active Substance: AZITHROMYCIN ANHYDROUS
     Indication: COUGH
     Dosage: UNK
     Route: 048
  3. GUAIFENESIN/CODEINE [Suspect]
     Active Substance: CODEINE PHOSPHATE\GUAIFENESIN
     Indication: RESPIRATORY TRACT INFECTION
  4. AZITHROMYCIN ANHYDROUS. [Suspect]
     Active Substance: AZITHROMYCIN ANHYDROUS
     Indication: RESPIRATORY TRACT INFECTION
  5. CODEINE [Suspect]
     Active Substance: CODEINE
     Indication: COUGH
     Dosage: 10 TO 20 MG, Q4H
     Route: 065
  6. CODEINE [Suspect]
     Active Substance: CODEINE
     Indication: RESPIRATORY TRACT INFECTION

REACTIONS (2)
  - Toxicity to various agents [Fatal]
  - Brain oedema [Fatal]
